FAERS Safety Report 16841536 (Version 5)
Quarter: 2019Q4

REPORT INFORMATION
  Report Type: Report from Study
  Country: US (occurrence: BR)
  Receive Date: 20190923
  Receipt Date: 20191125
  Transmission Date: 20200122
  Serious: Yes (Hospitalization, Other)
  Sender: FDA-Public Use
  Company Number: US-SUNOVION-2019SUN003846

PATIENT
  Age: 70 Year
  Sex: Male

DRUGS (10)
  1. INDACATEROL [Suspect]
     Active Substance: INDACATEROL
     Indication: LUNG DISORDER
     Dosage: 300 MG, UNK
     Route: 055
  2. XOLAIR [Suspect]
     Active Substance: OMALIZUMAB
     Dosage: UNK
     Route: 065
     Dates: start: 20190424
  3. XOLAIR [Suspect]
     Active Substance: OMALIZUMAB
     Dosage: 2 DF
     Route: 058
  4. SPIRIVA [Concomitant]
     Active Substance: TIOTROPIUM BROMIDE MONOHYDRATE
  5. XOLAIR [Suspect]
     Active Substance: OMALIZUMAB
     Indication: URTICARIA
     Dosage: UNK
     Route: 065
     Dates: start: 20190328
  6. HIXIZINE [Concomitant]
     Active Substance: HYDROXYZINE HYDROCHLORIDE
  7. INDACATEROL [Suspect]
     Active Substance: INDACATEROL
     Indication: CHRONIC OBSTRUCTIVE PULMONARY DISEASE
  8. DUOVENT [Concomitant]
     Active Substance: FENOTEROL HYDROBROMIDE
  9. MIFLONIDE [Suspect]
     Active Substance: BUDESONIDE
     Indication: CHRONIC OBSTRUCTIVE PULMONARY DISEASE
     Dosage: 3 DF, QD
     Route: 055
  10. PIEMONTE [Concomitant]
     Active Substance: MONTELUKAST SODIUM

REACTIONS (27)
  - Gait inability [Recovered/Resolved]
  - Secretion discharge [Not Recovered/Not Resolved]
  - Retching [Unknown]
  - Flatulence [Not Recovered/Not Resolved]
  - Speech disorder [Recovered/Resolved]
  - Chronic obstructive pulmonary disease [Not Recovered/Not Resolved]
  - Fatigue [Unknown]
  - Peripheral swelling [Recovered/Resolved]
  - Respiratory disorder [Unknown]
  - Somnolence [Recovered/Resolved]
  - Urticaria [Recovered/Resolved]
  - Insomnia [Recovered/Resolved]
  - Weight decreased [Recovering/Resolving]
  - Malaise [Recovered/Resolved]
  - Aortic aneurysm [Not Recovered/Not Resolved]
  - Temperature intolerance [Unknown]
  - Thrombosis [Recovered/Resolved]
  - Decreased appetite [Recovered/Resolved]
  - Pain [Recovered/Resolved]
  - Sensitivity to weather change [Unknown]
  - Pneumonia [Recovered/Resolved]
  - Headache [Recovered/Resolved]
  - Dyspnoea [Not Recovered/Not Resolved]
  - Respiration abnormal [Not Recovered/Not Resolved]
  - Gastric disorder [Recovered/Resolved]
  - Nausea [Recovered/Resolved]
  - Nervousness [Recovered/Resolved]

NARRATIVE: CASE EVENT DATE: 201712
